FAERS Safety Report 4459344-X (Version None)
Quarter: 2004Q3

REPORT INFORMATION
  Report Type: 
  Country: None (occurrence: None)
  Receive Date: 20040923
  Receipt Date: 20040914
  Transmission Date: 20050211
  Serious: Yes (Life-Threatening, Hospitalization, Other)
  Sender: FDA-Public Use
  Company Number: 2004-09-0814

PATIENT
  Age: 63 Year
  Sex: Female

DRUGS (2)
  1. TEMODAL [Suspect]
     Indication: GLIOBLASTOMA
     Dosage: ORAL
     Route: 048
     Dates: end: 20040801
  2. RADITATION THERAPY NO DOSE FORM [Suspect]
     Indication: GLIOBLASTOMA
     Dosage: X-RAY THERAPY
     Dates: end: 20040801

REACTIONS (4)
  - FALL [None]
  - PLATELET COUNT DECREASED [None]
  - SUBARACHNOID HAEMORRHAGE [None]
  - WHITE BLOOD CELL COUNT DECREASED [None]
